FAERS Safety Report 7867248-5 (Version None)
Quarter: 2011Q4

REPORT INFORMATION
  Report Type: 
  Country: None (occurrence: None)
  Receive Date: 20111028
  Receipt Date: 20111021
  Transmission Date: 20120403
  Serious: Yes (Hospitalization)
  Sender: FDA-Public Use
  Company Number: FR-JNJFOC-20111011305

PATIENT
  Sex: Female

DRUGS (1)
  1. DORIBAX [Suspect]
     Indication: ESCHERICHIA INFECTION
     Route: 041
     Dates: start: 20100307, end: 20100307

REACTIONS (1)
  - ANAPHYLACTIC SHOCK [None]
